FAERS Safety Report 8457883-8 (Version None)
Quarter: 2012Q2

REPORT INFORMATION
  Report Type: 
  Country: None (occurrence: None)
  Receive Date: 20120622
  Receipt Date: 20120607
  Transmission Date: 20120825
  Serious: Yes (Other)
  Sender: FDA-Public Use
  Company Number: CH-JNJFOC-20120608300

PATIENT
  Age: 38 Year
  Sex: Male
  Weight: 92 kg

DRUGS (5)
  1. PALEXIA IR [Suspect]
     Route: 048
     Dates: start: 20120604, end: 20120605
  2. PALEXIA IR [Suspect]
     Indication: MUSCULOSKELETAL PAIN
     Route: 048
     Dates: start: 20120606
  3. PALEXIA IR [Suspect]
     Route: 048
     Dates: start: 20120529, end: 20120531
  4. PALEXIA IR [Suspect]
     Route: 048
     Dates: start: 20120601, end: 20120603
  5. IBRUPROFEN [Concomitant]
     Indication: MUSCULOSKELETAL PAIN
     Route: 065

REACTIONS (2)
  - ERECTILE DYSFUNCTION [None]
  - DIARRHOEA [None]
